FAERS Safety Report 4790369-0 (Version None)
Quarter: 2005Q4

REPORT INFORMATION
  Report Type: 
  Country: None (occurrence: None)
  Receive Date: 20051005
  Receipt Date: 20051003
  Transmission Date: 20060501
  Serious: Yes (Other)
  Sender: FDA-Public Use
  Company Number: 005758

PATIENT
  Sex: Female

DRUGS (7)
  1. MEDROXYPROGESTERONE ACETATE [Suspect]
     Dosage: ORAL
     Route: 048
     Dates: start: 19930101, end: 19971013
  2. MEDROXYPROGESTERONE ACETATE [Suspect]
     Dosage: ORAL
     Route: 048
     Dates: start: 20000203, end: 20010316
  3. PROVERA [Suspect]
     Dosage: ORAL
     Route: 048
     Dates: start: 19930101, end: 19971013
  4. PROVERA [Suspect]
     Dosage: ORAL
     Route: 048
     Dates: start: 20000203, end: 20010316
  5. PREMARIN [Suspect]
     Dosage: ORAL
     Route: 048
     Dates: start: 19930101, end: 19971013
  6. PREMARIN [Suspect]
     Dosage: ORAL
     Route: 048
     Dates: start: 20000302, end: 20010316
  7. PREMPRO [Suspect]
     Dosage: ORAL
     Route: 048
     Dates: start: 19971014, end: 20000202

REACTIONS (1)
  - BREAST CANCER FEMALE [None]
